FAERS Safety Report 9643504 (Version 5)
Quarter: 2014Q1

REPORT INFORMATION
  Report Type: Report from Study
  Country: AT (occurrence: AT)
  Receive Date: 20131024
  Receipt Date: 20140331
  Transmission Date: 20141002
  Serious: Yes (Hospitalization)
  Sender: FDA-Public Use
  Company Number: AT-INCYTE CORPORATION-2013IN002322

PATIENT
  Age: 83 Year
  Sex: Female
  Weight: 65.3 kg

DRUGS (30)
  1. JAKAVI [Suspect]
     Indication: MYELOFIBROSIS
     Dosage: 15 MG, BID
     Route: 048
     Dates: start: 20130515
  2. JAKAVI [Suspect]
     Dosage: UNKNOWN
     Route: 065
     Dates: start: 20130715
  3. JAKAVI [Suspect]
     Dosage: 15 MG, BID
     Route: 048
     Dates: start: 20131109
  4. JAKAVI [Suspect]
     Dosage: 15 MG, QD
     Route: 048
     Dates: start: 20131110
  5. JAKAVI [Suspect]
     Dosage: 15 MG, BID
     Route: 048
     Dates: start: 20131111, end: 20140123
  6. THROMBO ASS [Concomitant]
     Dosage: UNK
     Dates: start: 2003
  7. SELOKEN [Concomitant]
     Dosage: UNK
     Dates: start: 2003, end: 20131113
  8. LASIX [Concomitant]
     Dosage: UNK
     Dates: start: 2011
  9. LISINOPRIL [Concomitant]
  10. FRAGMIN [Concomitant]
     Dosage: UNK
     Dates: start: 20130825, end: 20131113
  11. PASPERTIN [Concomitant]
     Dosage: UNK
     Dates: start: 20130828, end: 20131218
  12. SPIROBENE [Concomitant]
     Dosage: UNK
     Dates: start: 20130929
  13. URBASON    /GFR [Concomitant]
     Dosage: UNK
     Dates: start: 20130929, end: 20130929
  14. UNASYN                             /00903602/ [Concomitant]
     Dosage: UNK
     Dates: start: 20130826, end: 20130829
  15. TAZONAM [Concomitant]
     Dosage: UNK
     Dates: start: 20130829, end: 20130905
  16. VENDAL                             /00036303/ [Concomitant]
     Dosage: UNK
     Dates: start: 20130830
  17. ZOFRAN                             /00955302/ [Concomitant]
     Dosage: UNK
     Dates: start: 20131001, end: 20131001
  18. AQUAPHORIL [Concomitant]
     Dosage: UNK
     Dates: start: 20131110
  19. BUSCOPAN [Concomitant]
     Dosage: UNK
     Dates: start: 20131111, end: 20131111
  20. PASPERTIN                          /00041902/ [Concomitant]
     Dosage: UNK
     Dates: start: 20131111, end: 20131111
  21. BIOCEF                             /01043502/ [Concomitant]
     Dosage: UNK
     Dates: start: 20131111, end: 20131111
  22. CLAVAMOX DT                        /00756801/ [Concomitant]
     Dosage: UNK
     Dates: start: 20131212, end: 20131219
  23. DIPIDOLOR [Concomitant]
     Dosage: UNK
     Dates: start: 20131223, end: 20131223
  24. ENTEROBENE [Concomitant]
     Dosage: UNK
     Dates: start: 20131128, end: 20131128
  25. MEXALEN [Concomitant]
     Dosage: UNK
     Dates: start: 20131213, end: 20131213
  26. FENTANYL [Concomitant]
     Dosage: UNK
     Dates: start: 20131223, end: 20131223
  27. NOVALGINE [Concomitant]
     Dosage: UNK
     Dates: start: 20131223, end: 20131223
  28. GLANDOMED [Concomitant]
     Dosage: UNK
     Dates: start: 20131225, end: 20131227
  29. PANTOLOC                           /01263204/ [Concomitant]
     Dosage: UNK
     Dates: start: 20131223, end: 20131223
  30. PERFALGAN [Concomitant]
     Dosage: UNK
     Dates: start: 20130829, end: 20131223

REACTIONS (6)
  - Nausea [Not Recovered/Not Resolved]
  - Anaemia [Recovered/Resolved]
  - Pleural effusion [Recovered/Resolved]
  - Cough [Recovered/Resolved]
  - Hypocalcaemia [Recovered/Resolved]
  - Hypertension [Recovered/Resolved]
